FAERS Safety Report 6072456-2 (Version None)
Quarter: 2009Q1

REPORT INFORMATION
  Report Type: 
  Country: None (occurrence: None)
  Receive Date: 20090210
  Receipt Date: 20090129
  Transmission Date: 20090719
  Serious: Yes (Death)
  Sender: FDA-Public Use
  Company Number: US-PFIZER INC-2008152048

PATIENT
  Sex: Male

DRUGS (5)
  1. CHANTIX [Suspect]
     Indication: SMOKING CESSATION THERAPY
     Dosage: UNK
  2. LEVOTHYROXINE SODIUM [Concomitant]
  3. SEROQUEL [Concomitant]
  4. OXYCODONE HCL [Concomitant]
  5. WELLBUTRIN [Concomitant]

REACTIONS (1)
  - MYOCARDIAL INFARCTION [None]
